FAERS Safety Report 22711667 (Version 7)
Quarter: 2024Q1

REPORT INFORMATION
  Report Type: Spontaneous
  Country: JP (occurrence: JP)
  Receive Date: 20230717
  Receipt Date: 20240307
  Transmission Date: 20240409
  Serious: Yes (Hospitalization, Other)
  Sender: FDA-Public Use
  Company Number: JP-ONO-2023JP017913

PATIENT
  Age: 48 Year
  Sex: Female
  Weight: 47.3 kg

DRUGS (14)
  1. BRAFTOVI [Suspect]
     Active Substance: ENCORAFENIB
     Indication: Malignant melanoma
     Dosage: 450 MG
     Route: 048
     Dates: start: 20230626, end: 20230706
  2. BRAFTOVI [Suspect]
     Active Substance: ENCORAFENIB
     Dosage: 1 DF
     Route: 048
     Dates: start: 20230731, end: 20230731
  3. MEKTOVI [Suspect]
     Active Substance: BINIMETINIB
     Indication: Malignant melanoma
     Dosage: 90 MG
     Route: 048
     Dates: start: 20230626, end: 20230706
  4. OPDIVO [Suspect]
     Active Substance: NIVOLUMAB
     Indication: Malignant melanoma
     Dosage: 80 MG
     Route: 041
     Dates: start: 20221213, end: 20230206
  5. OPDIVO [Suspect]
     Active Substance: NIVOLUMAB
     Dosage: 240 MG
     Route: 041
     Dates: start: 20230410, end: 20230426
  6. YERVOY [Suspect]
     Active Substance: IPILIMUMAB
     Indication: Malignant melanoma
     Dosage: 150 MG
     Route: 041
     Dates: start: 20221213, end: 20230206
  7. CALONAL [Suspect]
     Active Substance: ACETAMINOPHEN
     Indication: Headache
     Dosage: UNK
     Route: 048
     Dates: start: 20221212, end: 202307
  8. VIMPAT [Concomitant]
     Active Substance: LACOSAMIDE
     Indication: Postoperative care
     Dosage: UNK
     Route: 048
     Dates: start: 202210, end: 2023
  9. LEVETIRACETAM [Concomitant]
     Active Substance: LEVETIRACETAM
     Indication: Postoperative care
     Dosage: UNK
     Route: 048
     Dates: start: 202210, end: 2023
  10. MAGNESIUM OXIDE [Concomitant]
     Active Substance: MAGNESIUM OXIDE
     Dosage: ORAL DRUG UNSPECIFIED FORM
     Route: 048
  11. LOXOPROFEN [Concomitant]
     Active Substance: LOXOPROFEN
     Dosage: ORAL DRUG UNSPECIFIED FORM
     Route: 048
  12. FAMOTIDINE [Concomitant]
     Active Substance: FAMOTIDINE
     Dosage: ORAL DRUG UNSPECIFIED FORM
     Route: 048
     Dates: start: 20230615
  13. ELOBIXIBAT [Concomitant]
     Active Substance: ELOBIXIBAT
     Dosage: ORAL DRUG UNSPECIFIED FORM
     Route: 048
     Dates: start: 20230616
  14. DOMPERIDONE [Concomitant]
     Active Substance: DOMPERIDONE
     Dosage: ORAL DRUG UNSPECIFIED FORM
     Route: 048
     Dates: start: 20230626

REACTIONS (2)
  - Erythema multiforme [Unknown]
  - Immune-mediated enterocolitis [Recovered/Resolved]

NARRATIVE: CASE EVENT DATE: 20230303
